FAERS Safety Report 12430568 (Version 1)
Quarter: 2016Q2

REPORT INFORMATION
  Report Type: Report from Study
  Country: US (occurrence: US)
  Receive Date: 20160602
  Receipt Date: 20160602
  Transmission Date: 20160815
  Serious: No
  Sender: FDA-Public Use
  Company Number: US-ABBVIE-15P-163-1504214-00

PATIENT
  Sex: Female

DRUGS (2)
  1. MARINOL [Suspect]
     Active Substance: DRONABINOL
     Indication: PRODUCT USED FOR UNKNOWN INDICATION
     Route: 065
     Dates: start: 20150616, end: 20150730
  2. MARINOL [Suspect]
     Active Substance: DRONABINOL
     Route: 065
     Dates: start: 20150730

REACTIONS (2)
  - Weight decreased [Unknown]
  - Decreased appetite [Unknown]
